FAERS Safety Report 4305760-6 (Version None)
Quarter: 2004Q1

REPORT INFORMATION
  Report Type: 
  Country: None (occurrence: None)
  Receive Date: 20040225
  Receipt Date: 20040213
  Transmission Date: 20041129
  Serious: Yes (Hospitalization, Other)
  Sender: FDA-Public Use
  Company Number: FRWYE228223JUL03

PATIENT
  Age: 34 Year
  Sex: Male

DRUGS (6)
  1. CYCLOSPORINE [Suspect]
     Indication: PROPHYLAXIS AGAINST TRANSPLANT REJECTION
     Dosage: 450 MG 1X PER 1 DAY, ORAL
     Route: 048
     Dates: start: 20030707
  2. THYMOGLOBULIN [Concomitant]
  3. CELLCEPT [Concomitant]
  4. OMEPRAZOLE [Concomitant]
  5. PREDNISOLONE [Concomitant]
  6. TENORMNIE (ATENOLOL) [Concomitant]

REACTIONS (5)
  - BLOOD CREATININE INCREASED [None]
  - GRAFT DYSFUNCTION [None]
  - HAEMODIALYSIS [None]
  - POST PROCEDURAL COMPLICATION [None]
  - RENAL TUBULAR NECROSIS [None]
